FAERS Safety Report 24315776 (Version 1)
Quarter: 2024Q3

REPORT INFORMATION
  Report Type: Spontaneous
  Country: JP (occurrence: JP)
  Receive Date: 20240913
  Receipt Date: 20240913
  Transmission Date: 20241017
  Serious: Yes (Death)
  Sender: SANDOZ
  Company Number: JP-SANDOZ-SDZ2024JP079997

PATIENT
  Age: 71 Year
  Sex: Male

DRUGS (1)
  1. RECLAST [Suspect]
     Active Substance: ZOLEDRONIC ACID
     Indication: Product used for unknown indication
     Dosage: 5 MG, (5 MILLIGRAM(S), IN 1 YEAR)
     Route: 041
     Dates: start: 20210525

REACTIONS (1)
  - Death [Fatal]

NARRATIVE: CASE EVENT DATE: 20240907
